FAERS Safety Report 21534409 (Version 1)
Quarter: 2022Q4

REPORT INFORMATION
  Report Type: Report from Study
  Country: DE (occurrence: DE)
  Receive Date: 20221101
  Receipt Date: 20221101
  Transmission Date: 20230112
  Serious: Yes (Hospitalization, Other)
  Sender: FDA-Public Use
  Company Number: DE-TAKEDA-DE201714060

PATIENT
  Age: 22 Year
  Sex: Male
  Weight: 51 kg

DRUGS (13)
  1. TEDUGLUTIDE [Suspect]
     Active Substance: TEDUGLUTIDE
     Indication: Short-bowel syndrome
     Dosage: 2 MILLIGRAM, QD
     Route: 042
     Dates: start: 20150221, end: 201607
  2. TEDUGLUTIDE [Suspect]
     Active Substance: TEDUGLUTIDE
     Indication: Short-bowel syndrome
     Dosage: 2 MILLIGRAM, QD
     Route: 042
     Dates: start: 20150221, end: 201607
  3. TEDUGLUTIDE [Suspect]
     Active Substance: TEDUGLUTIDE
     Indication: Short-bowel syndrome
     Dosage: 2 MILLIGRAM, QD
     Route: 042
     Dates: start: 20150221, end: 201607
  4. TEDUGLUTIDE [Suspect]
     Active Substance: TEDUGLUTIDE
     Indication: Short-bowel syndrome
     Dosage: 2 MILLIGRAM, QD
     Route: 042
     Dates: start: 20150221, end: 201607
  5. TEDUGLUTIDE [Suspect]
     Active Substance: TEDUGLUTIDE
     Dosage: 2.8 MILLIGRAM, QD
     Route: 042
     Dates: start: 201701, end: 201709
  6. TEDUGLUTIDE [Suspect]
     Active Substance: TEDUGLUTIDE
     Dosage: 2.8 MILLIGRAM, QD
     Route: 042
     Dates: start: 201701, end: 201709
  7. TEDUGLUTIDE [Suspect]
     Active Substance: TEDUGLUTIDE
     Dosage: 2.8 MILLIGRAM, QD
     Route: 042
     Dates: start: 201701, end: 201709
  8. TEDUGLUTIDE [Suspect]
     Active Substance: TEDUGLUTIDE
     Dosage: 2.8 MILLIGRAM, QD
     Route: 042
     Dates: start: 201701, end: 201709
  9. ENTYVIO [Concomitant]
     Active Substance: VEDOLIZUMAB
     Indication: Crohn^s disease
     Dosage: UNK, UNKNOWN
     Route: 065
     Dates: start: 20161018
  10. METAMIZOLE [Concomitant]
     Active Substance: METAMIZOLE
     Indication: Abdominal pain upper
     Dosage: 30 GTT DROPS, TID
     Route: 048
     Dates: start: 20220428
  11. BUDESONIDE [Concomitant]
     Active Substance: BUDESONIDE
     Indication: Crohn^s disease
     Dosage: 2 MILLIGRAM, BID
     Route: 048
     Dates: start: 202110, end: 202111
  12. BUDESONIDE [Concomitant]
     Active Substance: BUDESONIDE
     Indication: Dysphagia
     Dosage: 1 MILLIGRAM, BID
     Route: 048
     Dates: start: 202111
  13. CITALOPRAM [Concomitant]
     Active Substance: CITALOPRAM HYDROBROMIDE
     Indication: Depression
     Dosage: 40 MILLIGRAM, QD
     Route: 048
     Dates: start: 20210121

REACTIONS (1)
  - Device related infection [Recovered/Resolved]

NARRATIVE: CASE EVENT DATE: 20160308
